FAERS Safety Report 14692312 (Version 3)
Quarter: 2018Q2

REPORT INFORMATION
  Report Type: Spontaneous
  Country: US (occurrence: US)
  Receive Date: 20180329
  Receipt Date: 20180530
  Transmission Date: 20180711
  Serious: Yes (Other)
  Sender: FDA-Public Use
  Company Number: US-ASTRAZENECA-2018SE36738

PATIENT
  Sex: Female

DRUGS (1)
  1. BEVESPI AEROSPHERE [Suspect]
     Active Substance: FORMOTEROL FUMARATE\GLYCOPYRROLATE
     Dosage: 9 MCG/ 4.8 MCG, 2 PUFFS, TWICE A DAY
     Route: 055
     Dates: start: 2017

REACTIONS (2)
  - Product quality issue [Unknown]
  - Lung neoplasm malignant [Unknown]
